FAERS Safety Report 10223963 (Version 1)
Quarter: 2014Q2

REPORT INFORMATION
  Report Type: Spontaneous
  Country: CA (occurrence: CA)
  Receive Date: 20140609
  Receipt Date: 20140609
  Transmission Date: 20141212
  Serious: Yes (Death)
  Sender: FDA-Public Use
  Company Number: CA-CELGENEUS-028-21880-14060238

PATIENT
  Sex: Female

DRUGS (1)
  1. REVLIMID [Suspect]
     Indication: B-CELL LYMPHOMA RECURRENT
     Dosage: 25 MILLIGRAM
     Route: 048
     Dates: start: 20140514, end: 2014

REACTIONS (1)
  - Death [Fatal]
